FAERS Safety Report 13352912 (Version 1)
Quarter: 2017Q1

REPORT INFORMATION
  Report Type: Spontaneous
  Country: CN (occurrence: CN)
  Receive Date: 20170320
  Receipt Date: 20170320
  Transmission Date: 20170429
  Serious: Yes (Hospitalization)
  Sender: FDA-Public Use
  Company Number: PHHY2017CN038655

PATIENT
  Age: 65 Year
  Sex: Male

DRUGS (7)
  1. INSULIN [Concomitant]
     Active Substance: INSULIN NOS
     Indication: BLOOD GLUCOSE INCREASED
     Route: 065
  2. AMLODIPINE [Suspect]
     Active Substance: AMLODIPINE BESYLATE
     Indication: HYPERTENSION
     Dosage: 1 DF, QD
     Route: 065
  3. MELOXICAM. [Concomitant]
     Active Substance: MELOXICAM
     Indication: RHEUMATOID ARTHRITIS
     Dosage: UNK
     Route: 048
  4. METFORMIN [Concomitant]
     Active Substance: METFORMIN HYDROCHLORIDE
     Indication: BLOOD GLUCOSE INCREASED
     Route: 048
  5. LEFLUNOMIDE. [Concomitant]
     Active Substance: LEFLUNOMIDE
     Indication: RHEUMATOID ARTHRITIS
     Route: 048
  6. VOGLIBOSE [Concomitant]
     Active Substance: VOGLIBOSE
     Indication: BLOOD GLUCOSE INCREASED
     Route: 048
  7. METHOTREXATE. [Concomitant]
     Active Substance: METHOTREXATE
     Indication: RHEUMATOID ARTHRITIS
     Dosage: UNK
     Route: 048

REACTIONS (10)
  - Angina unstable [Unknown]
  - Hypertension [Unknown]
  - Dizziness [Unknown]
  - Cerebrovascular insufficiency [Unknown]
  - Arthralgia [Unknown]
  - Arteriosclerosis [Unknown]
  - Rheumatoid arthritis [Unknown]
  - Diabetes mellitus [Unknown]
  - Concomitant disease aggravated [Unknown]
  - Muscular weakness [Unknown]

NARRATIVE: CASE EVENT DATE: 2016
